FAERS Safety Report 8401187-6 (Version None)
Quarter: 2012Q2

REPORT INFORMATION
  Report Type: 
  Country: None (occurrence: None)
  Receive Date: 20120525
  Receipt Date: 20120514
  Transmission Date: 20120825
  Serious: Yes (Other)
  Sender: FDA-Public Use
  Company Number: AUR-APL-2012-02233

PATIENT
  Age: 60 Year
  Sex: Female
  Weight: 64 kg

DRUGS (8)
  1. IBUPROFEN [Concomitant]
  2. VAGIFEM [Concomitant]
  3. ASPIRIN [Concomitant]
  4. PERINDOPRIL ERBUMINE [Suspect]
     Indication: HYPERTENSION
     Dosage: 2 MG (2 MG, 1 IN 1 D), ORAL; 4 MG (4 MG, 1 IN 1 D),ORAL
     Route: 048
     Dates: start: 20111001
  5. PERINDOPRIL ERBUMINE [Suspect]
     Indication: HYPERTENSION
     Dosage: 2 MG (2 MG, 1 IN 1 D), ORAL; 4 MG (4 MG, 1 IN 1 D),ORAL
     Route: 048
     Dates: start: 20110401
  6. TEVA UK PERINDOPRIL (PERINDOPRIL ERBUMINE) [Concomitant]
     Indication: HYPERTENSION
     Dosage: 8 MG (8 MG, 1 IN 1 D),ORAL
     Route: 048
     Dates: start: 20120411, end: 20120416
  7. BENDROFLUMETHIAZIDE (BENDROFLUMETHAIZIDE) [Concomitant]
  8. SIMVASTATINT (SIMVASTATIN) [Concomitant]

REACTIONS (2)
  - ARTHRALGIA [None]
  - MUSCLE SPASMS [None]
